FAERS Safety Report 9638041 (Version 2)
Quarter: 2013Q4

REPORT INFORMATION
  Report Type: Report from Study
  Country: US (occurrence: US)
  Receive Date: 20131022
  Receipt Date: 20131022
  Transmission Date: 20140711
  Serious: Yes (Hospitalization, Other)
  Sender: FDA-Public Use
  Company Number: PHHO2011US11968

PATIENT
  Age: 65 Year
  Sex: Male

DRUGS (1)
  1. SOM230 [Suspect]
     Indication: PANCREATIC CARCINOMA
     Dosage: 900 UG, BID
     Route: 048
     Dates: start: 20110707, end: 20110711

REACTIONS (5)
  - Hyperglycaemia [Recovered/Resolved]
  - Ascites [Recovered/Resolved]
  - Urinary tract infection [Recovered/Resolved]
  - Nausea [Recovered/Resolved]
  - Vomiting [Recovered/Resolved]
